FAERS Safety Report 25190385 (Version 1)
Quarter: 2025Q2

REPORT INFORMATION
  Report Type: Spontaneous
  Country: JP (occurrence: JP)
  Receive Date: 20250411
  Receipt Date: 20250411
  Transmission Date: 20250717
  Serious: Yes (Other)
  Sender: SANDOZ
  Company Number: JP-asahikaseip-2025-AER-01895

PATIENT
  Age: 78 Year
  Sex: Female

DRUGS (1)
  1. RECLAST [Suspect]
     Active Substance: ZOLEDRONIC ACID
     Indication: Product used for unknown indication
     Route: 041
     Dates: start: 20240115

REACTIONS (2)
  - Prion disease [Unknown]
  - Coma [Unknown]

NARRATIVE: CASE EVENT DATE: 20241201
